FAERS Safety Report 9623705 (Version 3)
Quarter: 2013Q4

REPORT INFORMATION
  Report Type: Report from Study
  Country: US (occurrence: US)
  Receive Date: 20131015
  Receipt Date: 20131113
  Transmission Date: 20140711
  Serious: Yes (Death, Hospitalization)
  Sender: FDA-Public Use
  Company Number: US-ACTELION-A-US2013-89589

PATIENT
  Age: 56 Year
  Sex: Female

DRUGS (3)
  1. VELETRI [Suspect]
     Indication: PULMONARY ARTERIAL HYPERTENSION
     Dosage: 34 NG/KG, PER MIN
     Route: 041
     Dates: start: 20130916, end: 20131016
  2. TRACLEER [Suspect]
     Indication: COR PULMONALE CHRONIC
     Dosage: 125 MG, BID
     Route: 048
     Dates: start: 2010, end: 20131016
  3. ADCIRCA [Concomitant]

REACTIONS (5)
  - Right ventricular failure [Fatal]
  - Pulmonary arterial hypertension [Fatal]
  - Liver disorder [Fatal]
  - Dyspnoea [Fatal]
  - Fatigue [Fatal]
